FAERS Safety Report 7933416 (Version 2)
Quarter: 2013Q2

REPORT INFORMATION
  Report Type: Spontaneous
  Country: MX (occurrence: MX)
  Receive Date: 20110506
  Receipt Date: 20130404
  Transmission Date: 20140414
  Serious: Yes (Other)
  Sender: FDA-Public Use
  Company Number: PHHY2010MX49316

PATIENT
  Age: 63 Year
  Sex: Female

DRUGS (5)
  1. EXFORGE [Suspect]
     Indication: HYPERTENSION
     Dosage: 160 MG VALS AND 5 MG OF AMLO, DAILY
     Route: 048
     Dates: start: 20090120
  2. EXFORGE [Suspect]
     Dosage: 1 DF (160 MG OF VALSARTAN AND 10 MG OF AMLODIPINE), UNK
     Route: 048
     Dates: start: 20100501, end: 20110419
  3. EXFORGE [Suspect]
     Dosage: 1 DF 160 MG OF VALSARTAN AND 10 MG OF AMLODIPINE, UNK
     Route: 048
     Dates: start: 20110422
  4. LYRICA [Concomitant]
  5. ASPIRIN PROTECT [Concomitant]

REACTIONS (6)
  - Cardiomegaly [Recovered/Resolved]
  - Hypertension [Recovered/Resolved]
  - Hypotension [Unknown]
  - Blood pressure decreased [Recovered/Resolved]
  - Blood pressure [Unknown]
  - Disease progression [Unknown]
